FAERS Safety Report 8610295-6 (Version None)
Quarter: 2012Q3

REPORT INFORMATION
  Report Type: 
  Country: None (occurrence: None)
  Receive Date: 20120822
  Receipt Date: 20120817
  Transmission Date: 20120928
  Serious: Yes (Death, Other)
  Sender: FDA-Public Use
  Company Number: PHEH2012US012634

PATIENT
  Sex: Male
  Weight: 77 kg

DRUGS (1)
  1. ZOMETA [Suspect]
     Indication: MULTIPLE MYELOMA
     Dosage: 1 DF, EVERY 4 WEEKS
     Route: 042
     Dates: start: 20120425

REACTIONS (5)
  - DEATH [None]
  - NEOPLASM MALIGNANT [None]
  - BONE LESION [None]
  - MALIGNANT MELANOMA [None]
  - PAIN [None]
